FAERS Safety Report 8296985-6 (Version None)
Quarter: 2012Q2

REPORT INFORMATION
  Report Type: 
  Country: None (occurrence: None)
  Receive Date: 20120419
  Receipt Date: 20120410
  Transmission Date: 20120825
  Serious: No
  Sender: FDA-Public Use
  Company Number: US-BIOGENIDEC-2012BI012838

PATIENT
  Sex: Male

DRUGS (2)
  1. AVONEX [Concomitant]
     Indication: MULTIPLE SCLEROSIS
     Route: 030
     Dates: start: 20010504
  2. TYSABRI [Suspect]
     Indication: MULTIPLE SCLEROSIS
     Route: 042
     Dates: start: 20070509, end: 20110916

REACTIONS (5)
  - MUSCULOSKELETAL DISORDER [None]
  - ASTHENIA [None]
  - MOBILITY DECREASED [None]
  - DRUG INEFFECTIVE [None]
  - MULTIPLE SCLEROSIS [None]
